FAERS Safety Report 18367562 (Version 1)
Quarter: 2020Q4

REPORT INFORMATION
  Report Type: Spontaneous
  Country: US (occurrence: US)
  Receive Date: 20201009
  Receipt Date: 20201009
  Transmission Date: 20210114
  Serious: No
  Sender: FDA-Public Use
  Company Number: US-ROMARKLABS-2020-US-000232

PATIENT
  Age: 22 Year
  Sex: Female

DRUGS (4)
  1. WORMWOOD [Concomitant]
     Active Substance: WORMWOOD
     Indication: NUTRITIONAL SUPPLEMENTATION
     Route: 048
     Dates: end: 20200819
  2. UNSPECIFIED ANTI-PARASITIC SUPPLEMENT [Concomitant]
     Indication: NUTRITIONAL SUPPLEMENTATION
     Dates: end: 20200819
  3. ALINIA [Suspect]
     Active Substance: NITAZOXANIDE
     Indication: BABESIOSIS
     Dosage: 1 TABLET TWICE DAILY
     Route: 048
     Dates: start: 20200812, end: 20200819
  4. UNSPECIFIED PROBIOTIC [Concomitant]
     Indication: NUTRITIONAL SUPPLEMENTATION
     Route: 048

REACTIONS (4)
  - Malaise [Not Recovered/Not Resolved]
  - Vomiting [Not Recovered/Not Resolved]
  - Diarrhoea [Recovered/Resolved]
  - Faeces discoloured [Not Recovered/Not Resolved]

NARRATIVE: CASE EVENT DATE: 20200812
